FAERS Safety Report 10934768 (Version 2)
Quarter: 2015Q2

REPORT INFORMATION
  Report Type: Spontaneous
  Country: US (occurrence: US)
  Receive Date: 20150320
  Receipt Date: 20150617
  Transmission Date: 20150821
  Serious: No
  Sender: FDA-Public Use
  Company Number: US-GALDERMA-US14004641

PATIENT
  Age: 50 Year
  Sex: Female

DRUGS (8)
  1. FEXOFENADINE [Concomitant]
     Active Substance: FEXOFENADINE\FEXOFENADINE HYDROCHLORIDE
     Indication: HYPERSENSITIVITY
     Route: 048
  2. MIRVASO [Suspect]
     Active Substance: BRIMONIDINE TARTRATE
     Indication: ROSACEA
     Dosage: 0.33%
     Route: 061
     Dates: start: 201411, end: 20141123
  3. SELMA HAYEK LIQUID FOUNDATION [Concomitant]
     Route: 061
  4. NEUTROGENA OIL FREE MOISTURIZER [Concomitant]
     Indication: DRY SKIN PROPHYLAXIS
     Route: 061
     Dates: start: 2014
  5. PRILOSEC [Concomitant]
     Active Substance: OMEPRAZOLE MAGNESIUM
     Dosage: 20 MG
     Route: 048
  6. DOVE SOAP [Concomitant]
     Indication: THERAPEUTIC SKIN CARE TOPICAL
     Route: 061
     Dates: start: 1974
  7. METRONIDAZOLE LOTION (METRONIDAZOLE) 0.75% [Concomitant]
     Active Substance: METRONIDAZOLE
     Indication: ROSACEA
     Dosage: 0.75%
     Route: 061
     Dates: start: 20141106
  8. METFORMIN [Concomitant]
     Active Substance: METFORMIN HYDROCHLORIDE
     Dosage: 500 MG
     Route: 048

REACTIONS (5)
  - Skin burning sensation [Recovered/Resolved]
  - Erythema [Recovered/Resolved]
  - Flushing [Recovered/Resolved]
  - Drug ineffective [Recovered/Resolved]
  - Condition aggravated [Recovered/Resolved]

NARRATIVE: CASE EVENT DATE: 201411
